FAERS Safety Report 22594101 (Version 1)
Quarter: 2023Q2

REPORT INFORMATION
  Report Type: Other
  Country: US (occurrence: US)
  Receive Date: 20230613
  Receipt Date: 20230613
  Transmission Date: 20230721
  Serious: No
  Sender: FDA-Public Use
  Company Number: US-Bion-011705

PATIENT
  Age: 49 Year
  Sex: Male

DRUGS (2)
  1. CETIRIZINE [Suspect]
     Active Substance: CETIRIZINE HYDROCHLORIDE
     Indication: Eustachian tube dysfunction
     Dosage: 20MG IN THE MORNING AND 20MGAT NIGHT
  2. CETIRIZINE [Suspect]
     Active Substance: CETIRIZINE HYDROCHLORIDE
     Indication: Eustachian tube dysfunction
     Dosage: ONCE A DAY - 10MG /TWICE A DAY - 20MG IN THE MORNING AND 20MGAT NIGHT

REACTIONS (2)
  - Insomnia [Unknown]
  - Drug ineffective [Not Recovered/Not Resolved]
